FAERS Safety Report 6072982-6 (Version None)
Quarter: 2009Q1

REPORT INFORMATION
  Report Type: 
  Country: None (occurrence: None)
  Receive Date: 20090206
  Receipt Date: 20090202
  Transmission Date: 20090719
  Serious: Yes (Other)
  Sender: FDA-Public Use
  Company Number: ALA_00176_2008

PATIENT
  Sex: Male

DRUGS (7)
  1. CORTIFOAM [Suspect]
     Indication: PROPHYLAXIS
     Dosage: 1 DF BID RECTAL, 1 DF QD RECTAL
     Route: 054
     Dates: start: 20061201
  2. PENTASA [Concomitant]
  3. KY JELLY [Concomitant]
  4. PREVACID [Concomitant]
  5. FISH OIL [Concomitant]
  6. ZYRTEC [Concomitant]
  7. POLYVISOL VITAMINS [Concomitant]

REACTIONS (3)
  - FOREIGN BODY TRAUMA [None]
  - PROCTALGIA [None]
  - PROCTITIS [None]
